FAERS Safety Report 6506924-3 (Version None)
Quarter: 2009Q4

REPORT INFORMATION
  Report Type: 
  Country: None (occurrence: None)
  Receive Date: 20091127
  Receipt Date: 20090622
  Transmission Date: 20100525
  Serious: Yes (Hospitalization)
  Sender: FDA-Public Use
  Company Number: US200901004777

PATIENT
  Age: 49 Year
  Sex: Female

DRUGS (12)
  1. BYETTA [Suspect]
     Indication: TYPE 2 DIABETES MELLITUS
     Dosage: 10 UG, SUBCUTANEOUS
     Route: 058
     Dates: start: 20080313
  2. DYAZIDE [Concomitant]
  3. PRAVACHOL [Concomitant]
  4. GABAPENTIN [Concomitant]
  5. AVANDIA [Concomitant]
  6. REQUIP [Concomitant]
  7. VALIUM [Concomitant]
  8. ZANTAC 150 [Concomitant]
  9. REGLAN [Concomitant]
  10. VICODIN [Concomitant]
  11. CIPRO [Concomitant]
  12. SYNTHROID [Concomitant]

REACTIONS (1)
  - HYPERSENSITIVITY [None]
